FAERS Safety Report 7586162-6 (Version None)
Quarter: 2011Q2

REPORT INFORMATION
  Report Type: 
  Country: None (occurrence: None)
  Receive Date: 20110629
  Receipt Date: 20110629
  Transmission Date: 20111010
  Serious: Yes (Other)
  Sender: FDA-Public Use
  Company Number: None

PATIENT
  Age: 62 Year
  Sex: Female
  Weight: 69.8539 kg

DRUGS (1)
  1. BONIVA [Suspect]
     Indication: OSTEOPOROSIS
     Dosage: 150 MG ONCE MONTH
     Dates: start: 20110612

REACTIONS (2)
  - MYALGIA [None]
  - MOVEMENT DISORDER [None]
